FAERS Safety Report 7554632-2 (Version None)
Quarter: 2011Q2

REPORT INFORMATION
  Report Type: 
  Country: None (occurrence: None)
  Receive Date: 20110617
  Receipt Date: 20110607
  Transmission Date: 20111010
  Serious: Yes (Death, Hospitalization, Other)
  Sender: FDA-Public Use
  Company Number: AT-CELGENEUS-009-21880-11050921

PATIENT
  Age: 72 Year
  Sex: Female
  Weight: 54.8 kg

DRUGS (5)
  1. LORAZEPAM [Concomitant]
     Indication: ANXIETY
     Dosage: 1 MILLIGRAM
     Route: 065
     Dates: start: 20090101, end: 20110510
  2. METOPROLOL TARTRATE [Concomitant]
     Indication: HYPERTENSION
     Dosage: 47.5 MILLIGRAM
     Route: 065
     Dates: end: 20110510
  3. REVLIMID [Suspect]
     Dosage: 5 MILLIGRAM
     Route: 048
     Dates: start: 20110506, end: 20110508
  4. PANTOPRAZOLE SODIUM [Concomitant]
     Indication: PROPHYLAXIS
     Dosage: 40 MILLIGRAM
     Route: 065
     Dates: start: 20090101, end: 20110510
  5. EUTHYROX [Concomitant]
     Indication: HYPOTHYROIDISM
     Dosage: 50 MILLIGRAM
     Route: 065
     Dates: end: 20110510

REACTIONS (1)
  - CARDIOPULMONARY FAILURE [None]
